FAERS Safety Report 7269694-X (Version None)
Quarter: 2011Q1

REPORT INFORMATION
  Report Type: 
  Country: None (occurrence: None)
  Receive Date: 20110202
  Receipt Date: 20110124
  Transmission Date: 20110831
  Serious: Yes (Death)
  Sender: FDA-Public Use
  Company Number: DE-JNJFOC-20101001778

PATIENT
  Age: 75 Year
  Sex: Female

DRUGS (1)
  1. ABCIXIMAB [Suspect]
     Indication: ACUTE MYOCARDIAL INFARCTION
     Route: 042

REACTIONS (2)
  - VENTRICULAR FIBRILLATION [None]
  - RIGHT VENTRICULAR FAILURE [None]
